FAERS Safety Report 6972002-2 (Version None)
Quarter: 2010Q3

REPORT INFORMATION
  Report Type: 
  Country: None (occurrence: None)
  Receive Date: 20100908
  Receipt Date: 20100908
  Transmission Date: 20110219
  Serious: Yes (Other)
  Sender: FDA-Public Use
  Company Number: None

PATIENT
  Sex: Female
  Weight: 65.7716 kg

DRUGS (1)
  1. TOVIAZ [Suspect]
     Indication: HYPERTONIC BLADDER
     Dosage: 8MG 1
     Dates: start: 20100817

REACTIONS (4)
  - AGITATION [None]
  - EAR DISCOMFORT [None]
  - FEELING HOT [None]
  - PRURITUS [None]
